FAERS Safety Report 15637832 (Version 1)
Quarter: 2018Q4

REPORT INFORMATION
  Report Type: Spontaneous
  Country: US (occurrence: US)
  Receive Date: 20181120
  Receipt Date: 20181120
  Transmission Date: 20190205
  Serious: No
  Sender: FDA-Public Use
  Company Number: US-JNJFOC-20180635874

PATIENT
  Sex: Female
  Weight: 58.5 kg

DRUGS (18)
  1. ATORVASTATIN [Concomitant]
     Active Substance: ATORVASTATIN
  2. PROCHLORPERAZINE. [Concomitant]
     Active Substance: PROCHLORPERAZINE
  3. ESTRADIOL. [Concomitant]
     Active Substance: ESTRADIOL
  4. ALBUTEROL SULFATE. [Concomitant]
     Active Substance: ALBUTEROL SULFATE
  5. ONDANSETRON [Concomitant]
     Active Substance: ONDANSETRON
  6. LASIX [Concomitant]
     Active Substance: FUROSEMIDE
  7. MUCINEX [Concomitant]
     Active Substance: GUAIFENESIN
  8. ATENOLOL. [Concomitant]
     Active Substance: ATENOLOL
  9. PRILOSEC [Concomitant]
     Active Substance: OMEPRAZOLE MAGNESIUM
  10. POTASSIUM [Concomitant]
     Active Substance: POTASSIUM
  11. SPIRIVA [Concomitant]
     Active Substance: TIOTROPIUM BROMIDE MONOHYDRATE
  12. MAXZIDE [Concomitant]
     Active Substance: HYDROCHLOROTHIAZIDE\TRIAMTERENE
  13. COZAAR [Concomitant]
     Active Substance: LOSARTAN POTASSIUM
  14. IMBRUVICA [Suspect]
     Active Substance: IBRUTINIB
     Indication: B-CELL SMALL LYMPHOCYTIC LYMPHOMA
     Route: 048
     Dates: start: 20180518, end: 2018
  15. IMBRUVICA [Suspect]
     Active Substance: IBRUTINIB
     Indication: B-CELL SMALL LYMPHOCYTIC LYMPHOMA
     Route: 048
     Dates: start: 20171012
  16. NASONEX [Concomitant]
     Active Substance: MOMETASONE FUROATE
  17. ASMANEX HFA [Concomitant]
     Active Substance: MOMETASONE FUROATE
  18. ACYCLOVIR. [Concomitant]
     Active Substance: ACYCLOVIR

REACTIONS (1)
  - Dyspnoea [Unknown]
